FAERS Safety Report 22028607 (Version 2)
Quarter: 2023Q1

REPORT INFORMATION
  Report Type: Spontaneous
  Country: US (occurrence: US)
  Receive Date: 20230223
  Receipt Date: 20230301
  Transmission Date: 20230418
  Serious: Yes (Other)
  Sender: FDA-Public Use
  Company Number: US-MLMSERVICE-20230213-4104580-1

PATIENT
  Age: 4 Decade
  Sex: Male

DRUGS (4)
  1. METHYLPREDNISOLONE SODIUM SUCCINATE [Suspect]
     Active Substance: METHYLPREDNISOLONE SODIUM SUCCINATE
     Indication: Acute disseminated encephalomyelitis
     Dosage: 1 G, DAILY (HIGH DOSE)
     Route: 042
  2. HUMAN IMMUNOGLOBULIN G [Concomitant]
     Active Substance: HUMAN IMMUNOGLOBULIN G
     Indication: Acute disseminated encephalomyelitis
     Dosage: 2G/KG
     Route: 042
  3. TECOVIRIMAT [Concomitant]
     Active Substance: TECOVIRIMAT
     Indication: Smallpox
     Dosage: 600 MG, 2X/DAY (ON HOSPITAL DAY 2)
     Route: 048
  4. PENICILLIN G [Concomitant]
     Active Substance: PENICILLIN G
     Indication: Neurosyphilis
     Dosage: 24000000 IU, 1X/DAY
     Route: 042

REACTIONS (3)
  - Upper gastrointestinal haemorrhage [Unknown]
  - Gastric ulcer haemorrhage [Unknown]
  - Off label use [Unknown]
